FAERS Safety Report 20918687 (Version 5)
Quarter: 2022Q3

REPORT INFORMATION
  Report Type: Report from Study
  Country: AU (occurrence: None)
  Receive Date: 20220606
  Receipt Date: 20220705
  Transmission Date: 20221026
  Serious: Yes (Other)
  Sender: FDA-Public Use
  Company Number: AU-ROCHE-3106304

PATIENT
  Age: 71 Year
  Sex: Male
  Weight: 78.2 kg

DRUGS (23)
  1. PLACEBO [Suspect]
     Active Substance: UNSPECIFIED INGREDIENT
     Indication: Idiopathic pulmonary fibrosis
     Dosage: START DATE OF MOST RECENT DOSE OF STUDY DRUG PRIOR TO AE: 25/FEB/2022?START DATE OF MOST RECENT DOSE
     Route: 042
     Dates: start: 20210813
  2. NINTEDANIB [Suspect]
     Active Substance: NINTEDANIB
     Indication: Idiopathic pulmonary fibrosis
     Dosage: START DATE OF MOST RECENT DOSE 150 MG OF STUDY DRUG PRIOR TO AE:30/MAR/2022?START DATE OF MOST RECEN
     Route: 048
     Dates: start: 201707
  3. PIRFENIDONE [Concomitant]
     Active Substance: PIRFENIDONE
     Indication: Idiopathic pulmonary fibrosis
     Route: 048
     Dates: start: 201907
  4. ASPIRIN [Concomitant]
     Active Substance: ASPIRIN
     Indication: Coronary artery disease
     Route: 048
     Dates: start: 20170408
  5. ROSUVASTATIN [Concomitant]
     Active Substance: ROSUVASTATIN
     Indication: Coronary artery disease
     Route: 048
     Dates: start: 20170408
  6. FEXOTAB [Concomitant]
     Indication: Sinusitis
     Route: 048
     Dates: start: 202108
  7. FEXOTAB [Concomitant]
     Dosage: 1 TABLET
     Route: 048
     Dates: start: 20220219, end: 20220228
  8. LOPERAMIDE [Concomitant]
     Active Substance: LOPERAMIDE
     Indication: Diarrhoea
     Route: 048
     Dates: start: 20211103, end: 20220415
  9. LOPERAMIDE [Concomitant]
     Active Substance: LOPERAMIDE
     Indication: Diarrhoea
     Route: 048
     Dates: start: 20220416
  10. CHOLESTYRAMINE [Concomitant]
     Active Substance: CHOLESTYRAMINE
     Indication: Diarrhoea
     Route: 048
     Dates: start: 20211204
  11. ESOMEPRAZOLE [Concomitant]
     Active Substance: ESOMEPRAZOLE
     Indication: Gastrooesophageal reflux disease
     Route: 048
     Dates: start: 20211229
  12. PHENERGAN [Concomitant]
     Active Substance: PROMETHAZINE HYDROCHLORIDE
     Route: 048
     Dates: start: 20220219, end: 20220228
  13. HYDROCORTISONE [Concomitant]
     Active Substance: HYDROCORTISONE
     Dosage: 1 OTHER
     Route: 061
     Dates: start: 20220225, end: 20220228
  14. PREDNISOLONE [Concomitant]
     Active Substance: PREDNISOLONE
     Indication: Cough
     Route: 048
     Dates: start: 20220315, end: 20220415
  15. PREDNISOLONE [Concomitant]
     Active Substance: PREDNISOLONE
     Route: 048
     Dates: start: 20220528, end: 20220603
  16. PREDNISOLONE [Concomitant]
     Active Substance: PREDNISOLONE
     Route: 048
     Dates: start: 202206, end: 20220606
  17. PREDNISOLONE [Concomitant]
     Active Substance: PREDNISOLONE
     Route: 048
     Dates: start: 20220607, end: 20220609
  18. PREDNISOLONE [Concomitant]
     Active Substance: PREDNISOLONE
     Route: 048
     Dates: start: 20220610, end: 20220612
  19. PREDNISOLONE [Concomitant]
     Active Substance: PREDNISOLONE
     Route: 048
     Dates: start: 20220613, end: 20220613
  20. PREDNISOLONE [Concomitant]
     Active Substance: PREDNISOLONE
     Route: 048
     Dates: start: 20220616
  21. INFLUENZA VIRUS VACCINE [Concomitant]
     Active Substance: INFLUENZA VIRUS VACCINE
     Route: 030
     Dates: start: 20220514, end: 20220514
  22. ACETAMINOPHEN [Concomitant]
     Active Substance: ACETAMINOPHEN
     Indication: Headache
     Route: 048
     Dates: start: 20220501, end: 20220603
  23. SULFAMETHOXAZOLE\TRIMETHOPRIM [Concomitant]
     Active Substance: SULFAMETHOXAZOLE\TRIMETHOPRIM
     Route: 048
     Dates: start: 20220530

REACTIONS (1)
  - Microscopic polyangiitis [Not Recovered/Not Resolved]

NARRATIVE: CASE EVENT DATE: 20220330
